FAERS Safety Report 6394908-8 (Version None)
Quarter: 2009Q4

REPORT INFORMATION
  Report Type: 
  Country: None (occurrence: None)
  Receive Date: 20091009
  Receipt Date: 20091005
  Transmission Date: 20100525
  Serious: Yes (Death, Hospitalization, Other)
  Sender: FDA-Public Use
  Company Number: BR-ABBOTT-09P-020-0600927-00

PATIENT
  Sex: Female
  Weight: 100 kg

DRUGS (3)
  1. HUMIRA [Suspect]
     Indication: RHEUMATOID ARTHRITIS
     Route: 058
  2. UNKNOWN MAGISTRAL FORMULA [Concomitant]
     Indication: MINERAL SUPPLEMENTATION
     Route: 048
  3. UNKNOWN MAGISTRAL FORMULA [Concomitant]
     Indication: HORMONE REPLACEMENT THERAPY
     Route: 048

REACTIONS (4)
  - CARDIAC ARREST [None]
  - HIP ARTHROPLASTY [None]
  - HYPOTENSION [None]
  - PULMONARY EMBOLISM [None]
